FAERS Safety Report 9913978 (Version 2)
Quarter: 2014Q1

REPORT INFORMATION
  Report Type: Report from Study
  Country: US (occurrence: US)
  Receive Date: 20140220
  Receipt Date: 20140225
  Transmission Date: 20141002
  Serious: Yes (Hospitalization)
  Sender: FDA-Public Use
  Company Number: US-ACTELION-A-US2014-95047

PATIENT
  Age: 75 Year
  Sex: Male

DRUGS (3)
  1. VENTAVIS [Suspect]
     Indication: PULMONARY ARTERIAL HYPERTENSION
     Dosage: 5 UNK, 12XDAY
     Route: 055
     Dates: start: 201212
  2. DIGOXIN [Concomitant]
  3. SILDENAFIL [Concomitant]

REACTIONS (2)
  - Presyncope [Recovered/Resolved]
  - Syncope [Recovered/Resolved]
